FAERS Safety Report 6145147-7 (Version None)
Quarter: 2009Q2

REPORT INFORMATION
  Report Type: 
  Country: None (occurrence: None)
  Receive Date: 20090406
  Receipt Date: 20090327
  Transmission Date: 20091009
  Serious: Yes (Other)
  Sender: FDA-Public Use
  Company Number: BR-ELI_LILLY_AND_COMPANY-BR200904000685

PATIENT
  Sex: Male

DRUGS (4)
  1. CIALIS [Suspect]
     Dosage: UNK, UNKNOWN
     Route: 065
     Dates: start: 20070101
  2. ATENOLOL [Concomitant]
     Dosage: UNK, UNKNOWN
     Route: 065
  3. AMLODIPINE BESYLATE [Concomitant]
     Dosage: UNK, UNKNOWN
     Route: 065
  4. PRES PLUS [Concomitant]
     Dosage: UNK, UNKNOWN
     Route: 065

REACTIONS (1)
  - SYNCOPE [None]
